FAERS Safety Report 6662588-X (Version None)
Quarter: 2010Q1

REPORT INFORMATION
  Report Type: 
  Country: None (occurrence: None)
  Receive Date: 20100329
  Receipt Date: 20100316
  Transmission Date: 20100710
  Serious: Yes (Other)
  Sender: FDA-Public Use
  Company Number: A-CH2010-34927

PATIENT
  Age: 41 Year
  Sex: Female

DRUGS (1)
  1. TRACLEER [Suspect]
     Indication: SKIN ULCER
     Dosage: ORAL
     Route: 048

REACTIONS (1)
  - CONGENITAL CEREBROVASCULAR ANOMALY [None]
